FAERS Safety Report 12478765 (Version 2)
Quarter: 2016Q3

REPORT INFORMATION
  Report Type: Spontaneous
  Country: US (occurrence: US)
  Receive Date: 20160619
  Receipt Date: 20160705
  Transmission Date: 20161109
  Serious: No
  Sender: FDA-Public Use
  Company Number: US-009507513-1606USA008643

PATIENT
  Sex: Female
  Weight: 148.3 kg

DRUGS (1)
  1. NEXPLANON [Suspect]
     Active Substance: ETONOGESTREL
     Dosage: 68 MG /1 ROD EVER 3 YEARS
     Route: 059
     Dates: start: 20150217, end: 2016

REACTIONS (2)
  - No adverse event [Unknown]
  - Device breakage [Recovered/Resolved]
